FAERS Safety Report 5818288-9 (Version None)
Quarter: 2008Q3

REPORT INFORMATION
  Report Type: 
  Country: None (occurrence: None)
  Receive Date: 20080716
  Receipt Date: 20080702
  Transmission Date: 20090109
  Serious: Yes (Hospitalization)
  Sender: FDA-Public Use
  Company Number: 2008BI014228

PATIENT
  Age: 23 Year
  Sex: Female
  Weight: 106 kg

DRUGS (4)
  1. TYSABRI [Suspect]
     Indication: MULTIPLE SCLEROSIS
     Dosage: 300 MG; QM; IV
     Route: 042
     Dates: start: 20071004, end: 20080331
  2. DULOXETINE [Concomitant]
  3. CONTRACEPTIVE [Concomitant]
  4. THYRONAJOD [Concomitant]

REACTIONS (2)
  - GOITRE [None]
  - HYPERTHYROIDISM [None]
